FAERS Safety Report 14418639 (Version 1)
Quarter: 2018Q1

REPORT INFORMATION
  Report Type: Spontaneous
  Country: US (occurrence: US)
  Receive Date: 20180122
  Receipt Date: 20180122
  Transmission Date: 20180509
  Serious: No
  Sender: FDA-Public Use
  Company Number: US-TEVA-808636ACC

PATIENT
  Sex: Female

DRUGS (3)
  1. FORTAMET [Suspect]
     Active Substance: METFORMIN HYDROCHLORIDE
     Indication: TYPE 2 DIABETES MELLITUS
     Dates: start: 201606, end: 20170911
  2. INVOKANA [Concomitant]
     Active Substance: CANAGLIFLOZIN
     Route: 065
  3. TRULICITY [Concomitant]
     Active Substance: DULAGLUTIDE
     Route: 065

REACTIONS (4)
  - Gait disturbance [Unknown]
  - Medication residue present [Recovered/Resolved]
  - Back pain [Recovering/Resolving]
  - Diarrhoea [Recovered/Resolved]

NARRATIVE: CASE EVENT DATE: 201704
